FAERS Safety Report 26179108 (Version 1)
Quarter: 2025Q4

REPORT INFORMATION
  Report Type: Spontaneous
  Country: IN (occurrence: IN)
  Receive Date: 20251219
  Receipt Date: 20251219
  Transmission Date: 20260118
  Serious: Yes (Other)
  Sender: RANBAXY
  Company Number: IN-SUN PHARMACEUTICAL INDUSTRIES INC-2025R1-542609

PATIENT
  Age: 45 Year
  Sex: Female

DRUGS (9)
  1. ATORVASTATIN [Suspect]
     Active Substance: ATORVASTATIN
     Indication: Encephalopathy
     Dosage: 80 MILLIGRAM
     Route: 065
  2. CLOPIDOGREL [Suspect]
     Active Substance: CLOPIDOGREL BISULFATE
     Indication: Encephalopathy
     Dosage: 300 MILLIGRAM
     Route: 065
  3. CEFTRIAXONE [Suspect]
     Active Substance: CEFTRIAXONE
     Indication: Encephalopathy
     Dosage: 2 GRAM
     Route: 042
  4. LEVETIRACETAM [Suspect]
     Active Substance: LEVETIRACETAM
     Indication: Encephalopathy
     Dosage: 500 MILLIGRAM
     Route: 065
  5. TRANEXAMIC ACID [Suspect]
     Active Substance: TRANEXAMIC ACID
     Indication: Encephalopathy
     Dosage: 1 GRAM
     Route: 065
  6. ASPIRIN [Suspect]
     Active Substance: ASPIRIN
     Indication: Encephalopathy
     Dosage: 325 MILLIGRAM
     Route: 065
  7. HEPARIN [Suspect]
     Active Substance: HEPARIN SODIUM
     Indication: Encephalopathy
     Dosage: 5000 IU INTERNATIONAL UNIT(S)
     Route: 042
  8. INSULIN HUMAN [Suspect]
     Active Substance: INSULIN HUMAN
     Indication: Encephalopathy
     Dosage: UNK
     Route: 065
  9. SUCRALFATE [Suspect]
     Active Substance: SUCRALFATE
     Indication: Encephalopathy
     Dosage: 15 MILLILITER, TID
     Route: 065

REACTIONS (4)
  - Hypoxic-ischaemic encephalopathy [Unknown]
  - Gastric ulcer [Unknown]
  - Gastritis erosive [Unknown]
  - Upper gastrointestinal haemorrhage [Unknown]
